FAERS Safety Report 7510164-9 (Version None)
Quarter: 2011Q2

REPORT INFORMATION
  Report Type: 
  Country: None (occurrence: None)
  Receive Date: 20110527
  Receipt Date: 20110520
  Transmission Date: 20111010
  Serious: Yes (Hospitalization, Other)
  Sender: FDA-Public Use
  Company Number: JP-CEPHALON-2011000899

PATIENT
  Age: 73 Year
  Sex: Female
  Weight: 55 kg

DRUGS (10)
  1. BENDAMUSTINE HCL [Suspect]
     Route: 042
     Dates: start: 20110413, end: 20110414
  2. REBAMIPIDE [Concomitant]
     Dates: start: 20050101
  3. BENDAMUSTINE HCL [Suspect]
     Route: 042
     Dates: start: 20110317, end: 20110318
  4. BENDAMUSTINE HCL [Suspect]
     Indication: NON-HODGKIN'S LYMPHOMA RECURRENT
     Route: 042
     Dates: start: 20110125, end: 20110126
  5. SODIUM PICOSULFATE [Concomitant]
     Dates: start: 20100301
  6. MAGNESIUM OXIDE [Concomitant]
     Dates: start: 20110308
  7. SULFAMETHOXAZOL [Concomitant]
     Dates: start: 20050101
  8. TRIAMCINOLONE ACETONIDE [Concomitant]
  9. ACYCLOVIR [Concomitant]
     Dates: start: 20110124
  10. CLARITHROMYCIN [Concomitant]
     Dates: start: 20110404

REACTIONS (10)
  - MALAISE [None]
  - REFLUX OESOPHAGITIS [None]
  - TOXIC SKIN ERUPTION [None]
  - PYREXIA [None]
  - HEADACHE [None]
  - PLATELET COUNT DECREASED [None]
  - NAUSEA [None]
  - NEUTROPHIL COUNT DECREASED [None]
  - LYMPHOCYTE COUNT DECREASED [None]
  - WHITE BLOOD CELL COUNT DECREASED [None]
